FAERS Safety Report 5061480-4 (Version None)
Quarter: 2006Q3

REPORT INFORMATION
  Report Type: 
  Country: None (occurrence: None)
  Receive Date: 20060719
  Receipt Date: 20060719
  Transmission Date: 20061208
  Serious: Yes (Hospitalization)
  Sender: FDA-Public Use
  Company Number: None

PATIENT
  Age: 66 Year
  Sex: Male
  Weight: 112.4921 kg

DRUGS (4)
  1. FUROSEMIDE [Suspect]
     Dosage: 60 MG PO BID
     Route: 048
  2. LISINOPRIL [Suspect]
     Dosage: 40 MG PO QD
     Route: 048
  3. CARVEDILOL [Suspect]
     Dosage: 3.125 MG PO BID
     Route: 048
  4. SPIRONOLACTONE [Suspect]
     Dosage: 25 MG PO QD
     Route: 048

REACTIONS (5)
  - ASTHENIA [None]
  - DEHYDRATION [None]
  - HYPOTENSION [None]
  - ORAL INTAKE REDUCED [None]
  - RENAL FAILURE [None]
